FAERS Safety Report 21410501 (Version 1)
Quarter: 2022Q4

REPORT INFORMATION
  Report Type: Spontaneous
  Country: US (occurrence: None)
  Receive Date: 20221003
  Receipt Date: 20221003
  Transmission Date: 20230113
  Serious: Yes (Death)
  Sender: FDA-Public Use
  Company Number: None

PATIENT
  Sex: Female

DRUGS (1)
  1. LOKELMA [Suspect]
     Active Substance: SODIUM ZIRCONIUM CYCLOSILICATE
     Dosage: FREQUENCY : EVERY 8 HOURS;?EMPTY 10 GM^S (ONE FULL PACKET) AND MIX WITH (45 ML) OF WATER. STIR WELL
     Route: 048

REACTIONS (1)
  - Death [None]
